FAERS Safety Report 16398822 (Version 1)
Quarter: 2019Q2

REPORT INFORMATION
  Report Type: Spontaneous
  Country: AR (occurrence: AR)
  Receive Date: 20190606
  Receipt Date: 20190606
  Transmission Date: 20190711
  Serious: Yes (Hospitalization)
  Sender: FDA-Public Use
  Company Number: AR-PFIZER INC-2019126428

PATIENT
  Age: 37 Year
  Sex: Female

DRUGS (4)
  1. IBRANCE [Suspect]
     Active Substance: PALBOCICLIB
     Indication: BREAST CANCER METASTATIC
     Dosage: 125 MG, CYCLIC (SCHEME 3X1)
     Dates: start: 20180817
  2. ENSURE [NUTRIENTS NOS] [Concomitant]
  3. POLPER B12 [Concomitant]
  4. CIPROVIT CALCICO [Concomitant]

REACTIONS (4)
  - Gait inability [Unknown]
  - General physical health deterioration [Unknown]
  - Malaise [Unknown]
  - Pain [Unknown]

NARRATIVE: CASE EVENT DATE: 201905
